FAERS Safety Report 13409873 (Version 13)
Quarter: 2017Q3

REPORT INFORMATION
  Report Type: Spontaneous
  Country: US (occurrence: US)
  Receive Date: 20170406
  Receipt Date: 20170919
  Transmission Date: 20171127
  Serious: Yes (Other)
  Sender: FDA-Public Use
  Company Number: US-PFIZER INC-2017147590

PATIENT
  Age: 50 Year
  Sex: Female
  Weight: 57 kg

DRUGS (3)
  1. SUTENT [Suspect]
     Active Substance: SUNITINIB MALATE
     Indication: RENAL CANCER METASTATIC
     Dosage: 50 MG, CYCLIC (DAILY FOR 2 WEEKS ON / 1 WEEK OFF)
     Dates: start: 20170401
  2. LEVOTHYROXINE. [Concomitant]
     Active Substance: LEVOTHYROXINE
     Dosage: UNK
  3. HYDROCODONE BITARTRATE AND ACETAMINOPHEN [Concomitant]
     Active Substance: ACETAMINOPHEN\HYDROCODONE BITARTRATE
     Dosage: UNK

REACTIONS (57)
  - Urinary bladder haemorrhage [Recovered/Resolved]
  - Fatigue [Not Recovered/Not Resolved]
  - Skin exfoliation [Unknown]
  - Blood urine present [Recovered/Resolved]
  - Malaise [Unknown]
  - Ear pain [Recovered/Resolved]
  - Fluid intake reduced [Unknown]
  - Abdominal distension [Unknown]
  - Eructation [Unknown]
  - Swelling face [Unknown]
  - Nausea [Unknown]
  - Thyroid disorder [Recovered/Resolved]
  - Hot flush [Unknown]
  - Discomfort [Unknown]
  - Skin lesion [Unknown]
  - Night sweats [Unknown]
  - Facial pain [Recovered/Resolved]
  - Dysphonia [Unknown]
  - Diarrhoea [Recovered/Resolved]
  - Dysgeusia [Not Recovered/Not Resolved]
  - Weight increased [Unknown]
  - Alopecia [Unknown]
  - Upper respiratory tract congestion [Unknown]
  - Dyspepsia [Unknown]
  - White blood cell count decreased [Unknown]
  - Asthenia [Unknown]
  - Tongue disorder [Unknown]
  - Decreased appetite [Recovered/Resolved]
  - Insomnia [Not Recovered/Not Resolved]
  - Confusional state [Not Recovered/Not Resolved]
  - Memory impairment [Not Recovered/Not Resolved]
  - Back pain [Not Recovered/Not Resolved]
  - Musculoskeletal discomfort [Not Recovered/Not Resolved]
  - Sensation of foreign body [Recovered/Resolved]
  - Ageusia [Unknown]
  - Oral discomfort [Unknown]
  - Pain in extremity [Unknown]
  - Pyrexia [Unknown]
  - Dry skin [Unknown]
  - Irritability [Unknown]
  - Feeling hot [Unknown]
  - Psychiatric symptom [Unknown]
  - Emotional disorder [Unknown]
  - Nail discolouration [Unknown]
  - Gastrooesophageal reflux disease [Unknown]
  - Limb discomfort [Unknown]
  - Feeling abnormal [Unknown]
  - Nasal disorder [Unknown]
  - Haemoglobin decreased [Unknown]
  - Flatulence [Unknown]
  - Constipation [Recovering/Resolving]
  - Urinary tract infection [Recovered/Resolved]
  - Hyperkeratosis [Unknown]
  - Restlessness [Not Recovered/Not Resolved]
  - Pain [Unknown]
  - Headache [Recovered/Resolved]
  - Sinus disorder [Recovered/Resolved]

NARRATIVE: CASE EVENT DATE: 2017
